FAERS Safety Report 7742783-9 (Version None)
Quarter: 2011Q3

REPORT INFORMATION
  Report Type: 
  Country: None (occurrence: None)
  Receive Date: 20110831
  Receipt Date: 20110822
  Transmission Date: 20111222
  Serious: Yes (Hospitalization, Other)
  Sender: FDA-Public Use
  Company Number: 2009-198567-NL

PATIENT
  Age: 21 Year
  Sex: Female
  Weight: 69.4003 kg

DRUGS (4)
  1. CEPHALEXIN [Concomitant]
  2. AMITRIPTYLENE [Concomitant]
  3. MIRENA [Suspect]
     Indication: CONTRACEPTION
     Dates: start: 20091229
  4. NUVARING [Suspect]
     Indication: CONTRACEPTION
     Dates: start: 20061221, end: 20080101

REACTIONS (36)
  - ESCHERICHIA URINARY TRACT INFECTION [None]
  - DYSMENORRHOEA [None]
  - BRONCHITIS [None]
  - BRONCHOSPASM [None]
  - INTESTINAL POLYP [None]
  - PROTEINURIA [None]
  - MIGRAINE [None]
  - FEELING COLD [None]
  - ROTATOR CUFF SYNDROME [None]
  - PULMONARY EMBOLISM [None]
  - DYSPAREUNIA [None]
  - VIRAL INFECTION [None]
  - CONTUSION [None]
  - ABDOMINAL MASS [None]
  - MELAENA [None]
  - HYPOKALAEMIA [None]
  - LUNG INFILTRATION [None]
  - HEADACHE [None]
  - DECREASED APPETITE [None]
  - VAGINITIS BACTERIAL [None]
  - HYPOAESTHESIA [None]
  - REFUSAL OF TREATMENT BY PATIENT [None]
  - MYALGIA [None]
  - VIRAL UPPER RESPIRATORY TRACT INFECTION [None]
  - ASTHENIA [None]
  - COUGH [None]
  - ADNEXA UTERI CYST [None]
  - MYOCARDIAL INFARCTION [None]
  - WEIGHT DECREASED [None]
  - DEPRESSED MOOD [None]
  - MENORRHAGIA [None]
  - NEPHROLITHIASIS [None]
  - PYREXIA [None]
  - UTERINE HAEMORRHAGE [None]
  - GASTROENTERITIS [None]
  - ECTOPIC PREGNANCY [None]
